FAERS Safety Report 11826457 (Version 1)
Quarter: 2015Q4

REPORT INFORMATION
  Report Type: Spontaneous
  Country: GB (occurrence: GB)
  Receive Date: 20151211
  Receipt Date: 20151211
  Transmission Date: 20160305
  Serious: Yes (Life-Threatening, Other)
  Sender: FDA-Public Use
  Company Number: GB-GLAXOSMITHKLINE-GB2015174225

PATIENT
  Age: 63 Year
  Sex: Female
  Weight: 80 kg

DRUGS (12)
  1. INSULIN HUMAN [Concomitant]
     Active Substance: INSULIN HUMAN
  2. MENTHOL. [Concomitant]
     Active Substance: MENTHOL
  3. REMIFENTANIL [Concomitant]
     Active Substance: REMIFENTANIL
  4. ENOXAPARIN [Concomitant]
     Active Substance: ENOXAPARIN
  5. METRONIDAZOLE. [Concomitant]
     Active Substance: METRONIDAZOLE
  6. XYLOMETAZOLINE [Concomitant]
     Active Substance: XYLOMETAZOLINE
  7. ACICLOVIR [Suspect]
     Active Substance: ACYCLOVIR
     Indication: MENINGITIS VIRAL
     Dosage: 4 DOSES OF 800MG (10MG/KG) 8 HOURLY.
     Route: 042
     Dates: start: 20151122, end: 20151124
  8. DEXAMETASONE [Concomitant]
     Active Substance: DEXAMETHASONE
  9. AMOXICILLIN. [Concomitant]
     Active Substance: AMOXICILLIN
  10. CEFTRIAXONE. [Concomitant]
     Active Substance: CEFTRIAXONE
  11. CLOBETASOL [Concomitant]
     Active Substance: CLOBETASOL
  12. PROPOFOL. [Concomitant]
     Active Substance: PROPOFOL

REACTIONS (2)
  - Nephritis [Recovered/Resolved]
  - Blood creatinine increased [Recovered/Resolved]

NARRATIVE: CASE EVENT DATE: 20151124
